FAERS Safety Report 4578132-7 (Version None)
Quarter: 2005Q1

REPORT INFORMATION
  Report Type: 
  Country: None (occurrence: None)
  Receive Date: 20050202
  Receipt Date: 20050202
  Transmission Date: 20050727
  Serious: Yes (Other)
  Sender: FDA-Public Use
  Company Number: None

PATIENT
  Age: 32 Year
  Sex: Female

DRUGS (2)
  1. MS CONTIN [Suspect]
     Indication: EHLERS-DANLOS SYNDROME
     Dosage: 30MG TWICE QID
  2. MS CONTIN [Suspect]
     Indication: PAIN
     Dosage: 30MG TWICE QID

REACTIONS (2)
  - MALABSORPTION [None]
  - PHARMACEUTICAL PRODUCT COMPLAINT [None]
